FAERS Safety Report 13517767 (Version 2)
Quarter: 2017Q3

REPORT INFORMATION
  Report Type: Report from Study
  Country: None (occurrence: US)
  Receive Date: 20170505
  Receipt Date: 20170804
  Transmission Date: 20171127
  Serious: Yes (Other)
  Sender: FDA-Public Use
  Company Number: US-ABBVIE-17K-163-1960415-00

PATIENT
  Sex: Female
  Weight: 51.3 kg

DRUGS (4)
  1. LOVASTATIN. [Concomitant]
     Active Substance: LOVASTATIN
     Indication: BLOOD CHOLESTEROL INCREASED
  2. LEXAPRO [Concomitant]
     Active Substance: ESCITALOPRAM OXALATE
     Indication: VOLVULUS
  3. HUMIRA [Suspect]
     Active Substance: ADALIMUMAB
     Indication: PSORIASIS
     Route: 058
     Dates: start: 2014
  4. PREDNISONE. [Suspect]
     Active Substance: PREDNISONE
     Indication: MUSCULOSKELETAL DISCOMFORT
     Route: 065
     Dates: start: 2016

REACTIONS (4)
  - Musculoskeletal discomfort [Recovered/Resolved]
  - Nerve compression [Unknown]
  - Psychomotor hyperactivity [Unknown]
  - Tendonitis [Unknown]

NARRATIVE: CASE EVENT DATE: 2016
